FAERS Safety Report 5482290-X (Version None)
Quarter: 2007Q4

REPORT INFORMATION
  Report Type: 
  Country: None (occurrence: None)
  Receive Date: 20071011
  Receipt Date: 20071002
  Transmission Date: 20080405
  Serious: Yes (Hospitalization, Disabling)
  Sender: FDA-Public Use
  Company Number: US-JNJFOC-20071001266

PATIENT
  Sex: Female

DRUGS (19)
  1. DOXORUBICIN HYDROCHLORIDE [Suspect]
     Dosage: CYCLE 3 RESTARTED.
     Route: 042
  2. DOXORUBICIN HYDROCHLORIDE [Suspect]
     Indication: MULTIPLE MYELOMA
     Route: 042
  3. VINCRISTINE [Suspect]
     Dosage: CYCLE 3
     Route: 042
  4. VINCRISTINE [Suspect]
     Indication: MULTIPLE MYELOMA
     Route: 042
  5. DEXAMETHASONE 0.5MG TAB [Suspect]
     Dosage: CYCLE 3
     Route: 042
  6. DEXAMETHASONE 0.5MG TAB [Suspect]
     Indication: MULTIPLE MYELOMA
     Route: 042
  7. ARSENIC TRIOXIDE [Suspect]
     Dosage: CYCLE 3
     Route: 042
  8. ARSENIC TRIOXIDE [Suspect]
     Indication: MULTIPLE MYELOMA
     Route: 042
  9. LOPRESSOR [Concomitant]
     Route: 048
  10. NORVASC [Concomitant]
     Route: 048
  11. BUMEX [Concomitant]
     Route: 048
  12. LANOXIN [Concomitant]
     Route: 048
  13. PENTAMIDINE ISETHIONATE [Concomitant]
     Route: 048
  14. VALTREX [Concomitant]
     Route: 048
  15. NEURONTIN [Concomitant]
     Route: 048
  16. AUGMENTIN '125' [Concomitant]
     Indication: ORAL HERPES
     Dosage: X 5 DAYS
     Route: 048
  17. PHENERGAN HCL [Concomitant]
     Indication: NAUSEA
     Dosage: EVERY 4-6 HOURS, AS NEEDED
     Route: 048
  18. VICODINE [Concomitant]
     Indication: PAIN
     Dosage: 5/500MG EVERY 4-6 HOURS AS NEEDED
     Route: 048
  19. OXYCODONE HCL [Concomitant]
     Indication: PAIN
     Route: 048

REACTIONS (2)
  - COORDINATION ABNORMAL [None]
  - NEUTROPENIA [None]
